FAERS Safety Report 6725767-9 (Version None)
Quarter: 2010Q2

REPORT INFORMATION
  Report Type: 
  Country: None (occurrence: None)
  Receive Date: 20100514
  Receipt Date: 20100505
  Transmission Date: 20101027
  Serious: Yes (Other)
  Sender: FDA-Public Use
  Company Number: US-SANOFI-AVENTIS-2010SA026490

PATIENT
  Age: 65 Year
  Sex: Female

DRUGS (3)
  1. LANTUS [Suspect]
     Dosage: DOSE:65 UNIT(S)
     Route: 058
  2. OPTICLICK [Suspect]
  3. NOVOLOG [Concomitant]

REACTIONS (2)
  - DIABETIC RETINOPATHY [None]
  - EYE HAEMORRHAGE [None]
